FAERS Safety Report 10134126 (Version 1)
Quarter: 2014Q2

REPORT INFORMATION
  Report Type: Spontaneous
  Country: US (occurrence: US)
  Receive Date: 20140428
  Receipt Date: 20140428
  Transmission Date: 20141212
  Serious: No
  Sender: FDA-Public Use
  Company Number: US-SANOFI-AVENTIS-2013SA072470

PATIENT
  Age: 68 Year
  Sex: Female
  Weight: 72.5 kg

DRUGS (3)
  1. ALLEGRA [Suspect]
     Indication: EYELID OEDEMA
     Route: 065
     Dates: start: 2013
  2. LISINOPRIL [Concomitant]
     Route: 065
  3. VITAMIN D [Concomitant]
     Route: 065

REACTIONS (1)
  - Drug ineffective [Unknown]
